FAERS Safety Report 9531776 (Version 1)
Quarter: 2013Q2

REPORT INFORMATION
  Report Type: Spontaneous
  Country: US (occurrence: None)
  Receive Date: 20130418
  Receipt Date: 20130418
  Transmission Date: 20140414
  Serious: Yes (Other)
  Sender: FDA-Public Use
  Company Number: 2012PROUSA02238

PATIENT
  Age: 65 Year
  Sex: Male
  Weight: 85.7 kg

DRUGS (6)
  1. PROVENGE (SIPULEUCEL-T) SUSPENSION, 250ML [Suspect]
     Indication: PROSTATE CANCER METASTATIC
     Route: 042
     Dates: start: 20121025, end: 20121025
  2. LANTUS (INSULIN GLARGINE) [Concomitant]
  3. GLIPIZIDE XL (GLIPIZIDE) [Concomitant]
  4. ACCUPRIL (QUINAPRIL HYDROCHLORIDE) [Concomitant]
  5. PREDNISONE (PREDNISONE) [Concomitant]
  6. ZYTIGA (ABIRATERONE ACETATE) [Concomitant]

REACTIONS (1)
  - Disease progression [None]
